FAERS Safety Report 9580190 (Version 1)
Quarter: 2013Q3

REPORT INFORMATION
  Report Type: Spontaneous
  Country: US (occurrence: None)
  Receive Date: 20130916
  Receipt Date: 20130916
  Transmission Date: 20140515
  Serious: Yes (Hospitalization, Other)
  Sender: FDA-Public Use
  Company Number: JPI-P-032271

PATIENT
  Age: 55 Year
  Sex: Male
  Weight: 81.65 kg

DRUGS (8)
  1. XYREM (500 MILLIGRAM/MILLILITERS, SOLUTION) (SODIUM OXYBATE) [Suspect]
     Indication: INSOMNIA
     Dosage: 9 GM  (4.5 GM, 2 IN 1 D), ORAL
     Route: 048
     Dates: start: 20090216
  2. QUETIAPINE FUMARATE (UNKNOWN) [Concomitant]
  3. DOXEPIN (UNKNOWN) [Concomitant]
  4. PRAVASTATIN SODIUM (UNKNOWN) [Concomitant]
  5. ALLOPURINOL (UNKNOWN) [Concomitant]
  6. ZOLPIDEM TARTRATE (UNKNOWN) [Concomitant]
  7. IMIPRAMINE (UNKNOWN) [Concomitant]
  8. BUPROPION HCL (UNKNOWN) [Concomitant]

REACTIONS (2)
  - Suicide attempt [None]
  - Overdose [None]
